FAERS Safety Report 25283213 (Version 1)
Quarter: 2025Q2

REPORT INFORMATION
  Report Type: Spontaneous
  Country: US (occurrence: None)
  Receive Date: 20250507
  Receipt Date: 20250507
  Transmission Date: 20250716
  Serious: Yes (Hospitalization)
  Sender: FDA-CTU
  Company Number: None

PATIENT
  Age: 24 Year
  Sex: Female
  Weight: 46.35 kg

DRUGS (1)
  1. IVABRADINE [Suspect]
     Active Substance: IVABRADINE
     Indication: Cardiac disorder
     Route: 048
     Dates: start: 20250424, end: 20250503

REACTIONS (4)
  - Fatigue [None]
  - Blood pressure abnormal [None]
  - Muscular weakness [None]
  - Hot flush [None]

NARRATIVE: CASE EVENT DATE: 20250502
